FAERS Safety Report 9633671 (Version 1)
Quarter: 2013Q4

REPORT INFORMATION
  Report Type: Spontaneous
  Country: US (occurrence: US)
  Receive Date: 20131021
  Receipt Date: 20131021
  Transmission Date: 20140711
  Serious: No
  Sender: FDA-Public Use
  Company Number: US-BAYER-2013-127149

PATIENT
  Age: 43 Year
  Sex: Male

DRUGS (1)
  1. ULTRAVIST [Suspect]
     Indication: COMPUTERISED TOMOGRAM
     Dosage: 370 ML, ONCE
     Route: 042
     Dates: start: 20131018, end: 20131018

REACTIONS (2)
  - Extravasation [None]
  - Injection site bruising [None]
